FAERS Safety Report 11052709 (Version 2)
Quarter: 2015Q2

REPORT INFORMATION
  Report Type: Spontaneous
  Country: US (occurrence: US)
  Receive Date: 20150421
  Receipt Date: 20150525
  Transmission Date: 20150821
  Serious: No
  Sender: FDA-Public Use
  Company Number: US-JNJFOC-20150216648

PATIENT
  Age: 47 Year
  Sex: Female

DRUGS (1)
  1. RISPERDAL CONSTA [Suspect]
     Active Substance: RISPERIDONE
     Indication: SCHIZOPHRENIA, PARANOID TYPE
     Route: 030

REACTIONS (3)
  - Product container issue [Unknown]
  - Wrong technique in drug usage process [Not Recovered/Not Resolved]
  - Device damage [Unknown]

NARRATIVE: CASE EVENT DATE: 20150218
